FAERS Safety Report 5611472-9 (Version None)
Quarter: 2008Q1

REPORT INFORMATION
  Report Type: 
  Country: None (occurrence: None)
  Receive Date: 20080201
  Receipt Date: 20070612
  Transmission Date: 20080703
  Serious: No
  Sender: FDA-Public Use
  Company Number: A0655309A

PATIENT
  Age: 49 Year
  Sex: Female

DRUGS (5)
  1. LOTRONEX [Suspect]
     Indication: DRUG USE FOR UNKNOWN INDICATION
     Dosage: 1MG VARIABLE DOSE
     Route: 048
     Dates: start: 20070526, end: 20070527
  2. PREVACID [Concomitant]
  3. LIBRAX [Concomitant]
  4. DICYCLOMINE [Concomitant]
  5. ZYRTEC [Concomitant]

REACTIONS (2)
  - DRUG ADMINISTRATION ERROR [None]
  - EXPIRED DRUG ADMINISTERED [None]
